FAERS Safety Report 8788646 (Version 4)
Quarter: 2013Q1

REPORT INFORMATION
  Report Type: Spontaneous
  Country: IT (occurrence: IT)
  Receive Date: 20120916
  Receipt Date: 20130125
  Transmission Date: 20140127
  Serious: Yes (Other)
  Sender: FDA-Public Use
  Company Number: PHHY2012IT079620

PATIENT
  Sex: Female

DRUGS (4)
  1. GILENYA [Suspect]
     Indication: MULTIPLE SCLEROSIS
     Dosage: 0.5 MG, DAILY
     Route: 048
     Dates: start: 20120123, end: 20121120
  2. CIPRALEX [Concomitant]
     Indication: MULTIPLE SCLEROSIS
     Dosage: 10 MG, UNK
     Route: 048
     Dates: start: 20100330
  3. TOPAMAX [Concomitant]
     Indication: MULTIPLE SCLEROSIS
     Dosage: 50 MG, UNK
     Route: 048
     Dates: start: 20090825
  4. LYRICA [Concomitant]
     Dosage: 75 MG, UNK
     Route: 048
     Dates: start: 20120625

REACTIONS (2)
  - Loss of consciousness [Recovered/Resolved]
  - Drug ineffective [Unknown]
